FAERS Safety Report 8265789-2 (Version None)
Quarter: 2012Q2

REPORT INFORMATION
  Report Type: 
  Country: None (occurrence: None)
  Receive Date: 20120406
  Receipt Date: 20120404
  Transmission Date: 20120825
  Serious: Yes (Death)
  Sender: FDA-Public Use
  Company Number: PHHY2012TR028080

PATIENT
  Age: 2 Month
  Sex: Male
  Weight: 3.2 kg

DRUGS (3)
  1. AMPICILLIN AND SULBACTAM [Suspect]
     Indication: BACTERIAL INFECTION
  2. LEVOFLOXACIN [Suspect]
     Indication: BACTERIAL INFECTION
  3. CEFOTAXIME [Suspect]
     Indication: BACTERIAL INFECTION

REACTIONS (4)
  - DRUG RESISTANCE [None]
  - SEPSIS [None]
  - CORYNEBACTERIUM TEST POSITIVE [None]
  - CARDIO-RESPIRATORY ARREST [None]
